FAERS Safety Report 7709128-1 (Version None)
Quarter: 2011Q3

REPORT INFORMATION
  Report Type: 
  Country: None (occurrence: None)
  Receive Date: 20110825
  Receipt Date: 20110811
  Transmission Date: 20111222
  Serious: Yes (Hospitalization)
  Sender: FDA-Public Use
  Company Number: PHHY2011FI72852

PATIENT
  Sex: Male

DRUGS (1)
  1. EXFORGE [Suspect]
     Dosage: 35 DF, ONCE/SINGLE

REACTIONS (2)
  - INCORRECT DOSE ADMINISTERED [None]
  - INTENTIONAL DRUG MISUSE [None]
